FAERS Safety Report 6203712-2 (Version None)
Quarter: 2009Q2

REPORT INFORMATION
  Report Type: 
  Country: None (occurrence: None)
  Receive Date: 20090527
  Receipt Date: 20090518
  Transmission Date: 20091009
  Serious: Yes (Hospitalization)
  Sender: FDA-Public Use
  Company Number: FI-AVENTIS-200915229GDDC

PATIENT
  Age: 38 Year
  Sex: Female

DRUGS (4)
  1. LANTUS [Suspect]
     Route: 058
     Dates: start: 20030930, end: 20090513
  2. NOVORAPID [Concomitant]
     Dosage: DOSE: 18-30
     Route: 058
     Dates: start: 20030328, end: 20090513
  3. ATACAND [Concomitant]
     Indication: HYPERTENSION
     Route: 048
     Dates: start: 20020911
  4. SIMVASTATIN [Concomitant]
     Route: 048
     Dates: start: 20051220

REACTIONS (3)
  - GENERAL PHYSICAL HEALTH DETERIORATION [None]
  - KETOACIDOSIS [None]
  - VOMITING [None]
